FAERS Safety Report 14920120 (Version 42)
Quarter: 2022Q1

REPORT INFORMATION
  Report Type: Spontaneous
  Country: CA (occurrence: CA)
  Receive Date: 20180521
  Receipt Date: 20220331
  Transmission Date: 20220424
  Serious: Yes (Hospitalization, Other)
  Sender: FDA-Public Use
  Company Number: CA-CELLTRION INC.-2018CA019890

PATIENT

DRUGS (60)
  1. INFLECTRA [Suspect]
     Active Substance: INFLIXIMAB-DYYB
     Indication: Crohn^s disease
     Dosage: 10 MG/KG (500 MG), 0, 2, 6, THEN EVERY 8 WEEKS
     Route: 042
     Dates: start: 20180329, end: 20180511
  2. INFLECTRA [Suspect]
     Active Substance: INFLIXIMAB-DYYB
     Dosage: 10 MG/KG (500 MG), 0, 2, 6, THEN EVERY 8 WEEKS
     Route: 042
     Dates: start: 20180510
  3. INFLECTRA [Suspect]
     Active Substance: INFLIXIMAB-DYYB
     Dosage: 400 MG
     Route: 042
     Dates: start: 20180511
  4. INFLECTRA [Suspect]
     Active Substance: INFLIXIMAB-DYYB
     Dosage: 400 MG
     Route: 042
     Dates: start: 20180511
  5. INFLECTRA [Suspect]
     Active Substance: INFLIXIMAB-DYYB
     Dosage: 500 MG, EVERY 4 WEEKS
     Route: 042
     Dates: start: 20180606, end: 20190415
  6. INFLECTRA [Suspect]
     Active Substance: INFLIXIMAB-DYYB
     Dosage: 500 MG, EVERY 4 WEEKS
     Route: 042
     Dates: start: 20180801
  7. INFLECTRA [Suspect]
     Active Substance: INFLIXIMAB-DYYB
     Dosage: 500 MG, EVERY 4 WEEKS
     Route: 042
     Dates: start: 20180829
  8. INFLECTRA [Suspect]
     Active Substance: INFLIXIMAB-DYYB
     Dosage: 500 MG, EVERY 4 WEEKS
     Route: 042
     Dates: start: 20180927
  9. INFLECTRA [Suspect]
     Active Substance: INFLIXIMAB-DYYB
     Dosage: 500 MG, EVERY 4 WEEKS
     Route: 042
     Dates: start: 20181122
  10. INFLECTRA [Suspect]
     Active Substance: INFLIXIMAB-DYYB
     Dosage: 500 MG, EVERY 4 WEEKS
     Route: 042
     Dates: start: 20190117
  11. INFLECTRA [Suspect]
     Active Substance: INFLIXIMAB-DYYB
     Dosage: 500 MG, EVERY 4 WEEKS
     Route: 042
     Dates: start: 20190314
  12. INFLECTRA [Suspect]
     Active Substance: INFLIXIMAB-DYYB
     Dosage: 500 MG, EVERY 4 WEEKS
     Route: 042
     Dates: start: 20190415
  13. INFLECTRA [Suspect]
     Active Substance: INFLIXIMAB-DYYB
     Dosage: 600 MG, EVERY 4 WEEKS
     Route: 042
     Dates: start: 20190513, end: 20200715
  14. INFLECTRA [Suspect]
     Active Substance: INFLIXIMAB-DYYB
     Dosage: 500 MG, EVERY 4 WEEKS
     Route: 042
     Dates: start: 20190711
  15. INFLECTRA [Suspect]
     Active Substance: INFLIXIMAB-DYYB
     Dosage: 500 MG, EVERY 4 WEEKS
     Route: 042
     Dates: start: 20190903
  16. INFLECTRA [Suspect]
     Active Substance: INFLIXIMAB-DYYB
     Dosage: 500 MG, EVERY 4 WEEKS
     Route: 042
     Dates: start: 20191125
  17. INFLECTRA [Suspect]
     Active Substance: INFLIXIMAB-DYYB
     Dosage: 500 MG, EVERY 4 WEEKS
     Route: 042
     Dates: start: 20191219
  18. INFLECTRA [Suspect]
     Active Substance: INFLIXIMAB-DYYB
     Dosage: 500 MG, EVERY 4 WEEKS
     Route: 042
     Dates: start: 20200120
  19. INFLECTRA [Suspect]
     Active Substance: INFLIXIMAB-DYYB
     Dosage: 500 MG, EVERY 4 WEEKS
     Route: 042
     Dates: start: 20200217
  20. INFLECTRA [Suspect]
     Active Substance: INFLIXIMAB-DYYB
     Dosage: 500 MG, EVERY 4 WEEKS
     Route: 042
     Dates: start: 20200319
  21. INFLECTRA [Suspect]
     Active Substance: INFLIXIMAB-DYYB
     Dosage: 500 MG, EVERY 4 WEEKS
     Route: 042
     Dates: start: 20200617
  22. INFLECTRA [Suspect]
     Active Substance: INFLIXIMAB-DYYB
     Dosage: 600 MG EVERY 4 WEEKS
     Route: 042
     Dates: start: 20200812
  23. INFLECTRA [Suspect]
     Active Substance: INFLIXIMAB-DYYB
     Dosage: 10 MG/KG (ROUNDED TO THE NEAREST HUNDRED) EVERY 4 WEEKS
     Route: 042
     Dates: start: 20200820
  24. INFLECTRA [Suspect]
     Active Substance: INFLIXIMAB-DYYB
     Dosage: 10 MG/KG (ROUNDED TO THE NEAREST HUNDRED) EVERY 4 WEEKS
     Route: 042
     Dates: start: 20200909
  25. INFLECTRA [Suspect]
     Active Substance: INFLIXIMAB-DYYB
     Dosage: 10 MG/KG (ROUNDED TO THE NEAREST HUNDRED) EVERY 4 WEEKS
     Route: 042
     Dates: start: 20201007
  26. INFLECTRA [Suspect]
     Active Substance: INFLIXIMAB-DYYB
     Dosage: 10 MG/KG (ROUNDED TO THE NEAREST HUNDRED) EVERY 4 WEEKS
     Route: 042
     Dates: start: 20201104
  27. INFLECTRA [Suspect]
     Active Substance: INFLIXIMAB-DYYB
     Dosage: 10 MG/KG (ROUNDED TO THE NEAREST HUNDRED) EVERY 4 WEEKS
     Route: 042
     Dates: start: 20201230
  28. INFLECTRA [Suspect]
     Active Substance: INFLIXIMAB-DYYB
     Dosage: 10 MG/KG (ROUNDED TO THE NEAREST HUNDRED) EVERY 4 WEEKS
     Route: 042
     Dates: start: 20210127
  29. INFLECTRA [Suspect]
     Active Substance: INFLIXIMAB-DYYB
     Dosage: 10 MG/KG (ROUNDED TO THE NEAREST HUNDRED) EVERY 4 WEEKS
     Route: 042
     Dates: start: 20210325
  30. INFLECTRA [Suspect]
     Active Substance: INFLIXIMAB-DYYB
     Dosage: 10 MG/KG (ROUNDED TO THE NEAREST HUNDRED) EVERY 4 WEEKS
     Route: 042
     Dates: start: 20210422
  31. INFLECTRA [Suspect]
     Active Substance: INFLIXIMAB-DYYB
     Dosage: 700 MG
     Route: 042
     Dates: start: 20210518
  32. INFLECTRA [Suspect]
     Active Substance: INFLIXIMAB-DYYB
     Dosage: 10 MG/KG (ROUNDED TO THE NEAREST HUNDRED) EVERY 4 WEEKS
     Route: 042
     Dates: start: 20210616
  33. INFLECTRA [Suspect]
     Active Substance: INFLIXIMAB-DYYB
     Dosage: 10 MG/KG (ROUNDED TO THE NEAREST HUNDRED) EVERY 4 WEEKS
     Route: 042
     Dates: start: 20210713
  34. INFLECTRA [Suspect]
     Active Substance: INFLIXIMAB-DYYB
     Dosage: 10 MG/KG (ROUNDED TO THE NEAREST HUNDRED) EVERY 4 WEEKS
     Route: 042
     Dates: start: 20210811
  35. INFLECTRA [Suspect]
     Active Substance: INFLIXIMAB-DYYB
     Dosage: 10 MG/KG (ROUNDED TO THE NEAREST HUNDRED) EVERY 4 WEEKS
     Route: 042
     Dates: start: 20210908
  36. INFLECTRA [Suspect]
     Active Substance: INFLIXIMAB-DYYB
     Dosage: 10 MG/KG (ROUNDED TO THE NEAREST HUNDRED) EVERY 4 WEEKS
     Route: 042
     Dates: start: 20211004
  37. INFLECTRA [Suspect]
     Active Substance: INFLIXIMAB-DYYB
     Dosage: 10 MG/KG (ROUNDED TO THE NEAREST HUNDRED) EVERY 4 WEEKS
     Route: 042
     Dates: start: 20211101
  38. INFLECTRA [Suspect]
     Active Substance: INFLIXIMAB-DYYB
     Dosage: 10 MG/KG (ROUNDED TO THE NEAREST HUNDRED) EVERY 4 WEEKS
     Route: 042
     Dates: start: 20211201
  39. INFLECTRA [Suspect]
     Active Substance: INFLIXIMAB-DYYB
     Dosage: 10 MG/KG (ROUNDED TO THE NEAREST HUNDRED) EVERY 4 WEEKS
     Route: 042
     Dates: start: 20220105
  40. INFLECTRA [Suspect]
     Active Substance: INFLIXIMAB-DYYB
     Dosage: 10 MG/KG (ROUNDED TO THE NEAREST HUNDRED) EVERY 4 WEEKS
     Route: 042
     Dates: start: 20220310
  41. INFLECTRA [Suspect]
     Active Substance: INFLIXIMAB-DYYB
     Dosage: 10 MG/KG (ROUNDED TO THE NEAREST HUNDRED) EVERY 4 WEEKS
     Route: 042
     Dates: start: 20220310
  42. CORTISONE [Concomitant]
     Active Substance: CORTISONE
     Indication: Arthritis
     Dosage: 1 DF, DOSAGE NOT AVAILABLE
     Route: 065
  43. DECADOLONE [Concomitant]
     Dosage: 1 DF, DOSAGE NOT AVAILABLE - UNKNOWN IF ONGOING
     Route: 065
  44. DILAUDID [Concomitant]
     Active Substance: HYDROMORPHONE HYDROCHLORIDE
     Dosage: 2 MG, EVERY 4-6 HOURS
     Route: 065
  45. DIPHENHYDRAMINE HYDROCHLORIDE [Concomitant]
     Active Substance: DIPHENHYDRAMINE HYDROCHLORIDE
     Indication: Premedication
     Dosage: 50 MG
     Route: 042
  46. DIPHENHYDRAMINE HYDROCHLORIDE [Concomitant]
     Active Substance: DIPHENHYDRAMINE HYDROCHLORIDE
     Dosage: 50 MG
     Route: 042
     Dates: start: 20210616, end: 20210616
  47. FOLIC ACID [Concomitant]
     Active Substance: FOLIC ACID
     Dosage: 1 DF, DAILY, DOSAGE NOT AVAILABLE
     Route: 065
  48. FLAGYL [Concomitant]
     Active Substance: METRONIDAZOLE\METRONIDAZOLE HYDROCHLORIDE
     Dosage: 1 DF, DOSAGE NOT AVAILABLE - UNKNOWN IF ONGOING
     Route: 065
  49. HUMIRA [Concomitant]
     Active Substance: ADALIMUMAB
     Dosage: UNK
  50. HYDROCORTISONE [Concomitant]
     Active Substance: HYDROCORTISONE
     Indication: Premedication
     Dosage: 200 MG
     Route: 042
  51. HYDROCORTISONE [Concomitant]
     Active Substance: HYDROCORTISONE
     Dosage: 200 MG
     Route: 042
     Dates: start: 20210616, end: 20210616
  52. IMURAN [Concomitant]
     Active Substance: AZATHIOPRINE
     Dosage: UNK
     Dates: start: 2014
  53. K-DUR [Concomitant]
     Active Substance: POTASSIUM CHLORIDE
     Dosage: 1 DF, DOSAGE NOT AVAILABLE - UNKNOWN IF ONGOING
     Route: 065
  54. LOMOTIL [Concomitant]
     Active Substance: ATROPINE SULFATE\DIPHENOXYLATE HYDROCHLORIDE
     Dosage: 1 DF, DOSAGE NOT AVAILABLE
     Route: 065
  55. METHOTREXATE [Concomitant]
     Active Substance: METHOTREXATE
     Dosage: 1 DF, DOSAGE NOT AVAILABLE
     Route: 065
     Dates: start: 2015, end: 2016
  56. METHOTREXATE [Concomitant]
     Active Substance: METHOTREXATE
     Dosage: 1 DF, DOSAGE NOT AVAILABLE
     Route: 058
     Dates: start: 20180329
  57. MORPHINE [Concomitant]
     Active Substance: MORPHINE
     Dosage: 1 DF, DOSAGE NOT AVAILABLE - UNKNOWN IF ONGOING
     Route: 065
  58. PANTOPRAZOLE SODIUM [Concomitant]
     Active Substance: PANTOPRAZOLE SODIUM
     Dosage: UNK
  59. PREDNISONE [Concomitant]
     Active Substance: PREDNISONE
     Dosage: 30 MG
     Route: 065
  60. ACETAMINOPHEN\TRAMADOL [Concomitant]
     Active Substance: ACETAMINOPHEN\TRAMADOL
     Dosage: 1 DF, DOSAGE NOT AVAILABLE - UNKNOWN IF ONGOING
     Route: 065

REACTIONS (55)
  - Anaphylactic reaction [Unknown]
  - Abdominal pain [Recovered/Resolved]
  - Dehydration [Unknown]
  - Infusion related reaction [Unknown]
  - Hypoaesthesia oral [Recovered/Resolved]
  - Throat tightness [Recovered/Resolved]
  - Intestinal obstruction [Unknown]
  - Condition aggravated [Recovering/Resolving]
  - Stoma complication [Unknown]
  - Stoma obstruction [Not Recovered/Not Resolved]
  - Drug level decreased [Unknown]
  - Off label use [Unknown]
  - Intentional product use issue [Unknown]
  - Off label use [Unknown]
  - Off label use [Unknown]
  - Inappropriate schedule of product administration [Unknown]
  - Incorrect dose administered [Unknown]
  - Arthralgia [Not Recovered/Not Resolved]
  - Asthenia [Unknown]
  - Arthritis [Unknown]
  - Anal fistula [Unknown]
  - Dehydration [Unknown]
  - Dysphagia [Unknown]
  - Rash erythematous [Unknown]
  - Erythema [Recovered/Resolved]
  - Fatigue [Unknown]
  - Heart rate irregular [Unknown]
  - Hot flush [Unknown]
  - Injection site pain [Unknown]
  - Peripheral swelling [Unknown]
  - Localised oedema [Unknown]
  - Mouth ulceration [Unknown]
  - Pharyngeal ulceration [Unknown]
  - Mobility decreased [Unknown]
  - Nausea [Unknown]
  - Pharyngeal paraesthesia [Unknown]
  - Pharyngeal oedema [Unknown]
  - Pain in extremity [Not Recovered/Not Resolved]
  - Rash papular [Not Recovered/Not Resolved]
  - Stoma site discharge [Unknown]
  - Synovitis [Unknown]
  - Tachycardia [Unknown]
  - Tooth disorder [Unknown]
  - Vomiting [Unknown]
  - Weight increased [Not Recovered/Not Resolved]
  - Weight decreased [Recovered/Resolved]
  - Uterine disorder [Unknown]
  - Lip erythema [Unknown]
  - Muscle spasms [Unknown]
  - Abdominal pain lower [Unknown]
  - Product dose omission issue [Unknown]
  - Blood pressure increased [Unknown]
  - Heart rate increased [Unknown]
  - COVID-19 [Recovered/Resolved]
  - Maternal exposure during pregnancy [Unknown]

NARRATIVE: CASE EVENT DATE: 20180101
